FAERS Safety Report 22538308 (Version 2)
Quarter: 2023Q4

REPORT INFORMATION
  Report Type: Report from Study
  Country: CA (occurrence: CA)
  Receive Date: 20230609
  Receipt Date: 20231120
  Transmission Date: 20240110
  Serious: Yes (Life-Threatening, Hospitalization, Other)
  Sender: FDA-Public Use
  Company Number: None

PATIENT
  Age: 2 Year
  Sex: Female
  Weight: 12 kg

DRUGS (13)
  1. LACOSAMIDE [Suspect]
     Active Substance: LACOSAMIDE
     Indication: Epilepsy
     Dosage: 2 EVERY 1 DAYS
     Route: 048
  2. GABAPENTIN [Suspect]
     Active Substance: GABAPENTIN
     Indication: Epilepsy
     Dosage: 1 EVERY 1 DAYS
     Route: 048
  3. LEVETIRACETAM [Suspect]
     Active Substance: LEVETIRACETAM
     Indication: Epilepsy
     Dosage: 2 EVERY 1 DAYS
     Route: 048
  4. CLONAZEPAM [Suspect]
     Active Substance: CLONAZEPAM
     Indication: Epilepsy
     Dosage: 3 EVERY 1 DAYS
     Route: 048
  5. CLONIDINE [Suspect]
     Active Substance: CLONIDINE
     Indication: Epilepsy
     Dosage: 1 EVERY 1 DAYS
     Route: 048
  6. SABRIL [Suspect]
     Active Substance: VIGABATRIN
     Indication: Epilepsy
     Dosage: 3 EVERY 1 DAYS, ALSO RECEIVED 1500 MG
     Route: 048
  7. VALPROIC ACID [Suspect]
     Active Substance: VALPROIC ACID
     Indication: Epilepsy
     Dosage: 4 EVERY 1 DAYS
     Route: 048
  8. CHOLECALCIFEROL [Concomitant]
     Active Substance: CHOLECALCIFEROL
     Route: 065
  9. CISAPRIDE [Concomitant]
     Active Substance: CISAPRIDE
     Route: 065
  10. LANSOPRAZOLE [Concomitant]
     Active Substance: LANSOPRAZOLE
     Dosage: CAPSULE, DELAYED RELEASE
     Route: 065
  11. POLYETHYLENE GLYCOLS [Concomitant]
     Active Substance: POLYETHYLENE GLYCOLS
     Route: 065
  12. VITAMIN B6 [Concomitant]
     Active Substance: PYRIDOXINE HYDROCHLORIDE
     Route: 065
  13. POLYETHYLENE GLYCOL [Concomitant]
     Active Substance: POLYETHYLENE GLYCOL

REACTIONS (3)
  - Somnolence [Recovered/Resolved]
  - Oxygen saturation decreased [Recovered/Resolved]
  - Hypoventilation [Recovered/Resolved]
